FAERS Safety Report 6992641-2 (Version None)
Quarter: 2010Q3

REPORT INFORMATION
  Report Type: 
  Country: None (occurrence: None)
  Receive Date: 20100917
  Receipt Date: 20100914
  Transmission Date: 20110219
  Serious: Yes (Other)
  Sender: FDA-Public Use
  Company Number: GB-ROCHE-727514

PATIENT

DRUGS (2)
  1. AVASTIN [Suspect]
     Indication: LUNG CANCER METASTATIC
     Route: 065
  2. ALIMTA [Suspect]
     Indication: LUNG CANCER METASTATIC
     Route: 065

REACTIONS (1)
  - LUNG CANCER METASTATIC [None]
